FAERS Safety Report 20409970 (Version 1)
Quarter: 2022Q1

REPORT INFORMATION
  Report Type: Spontaneous
  Country: US (occurrence: US)
  Receive Date: 20220201
  Receipt Date: 20220201
  Transmission Date: 20220424
  Serious: No
  Sender: FDA-Public Use
  Company Number: US-SANOFI-00944613

PATIENT
  Age: 56 Year
  Sex: Female

DRUGS (1)
  1. RENVELA [Suspect]
     Active Substance: SEVELAMER CARBONATE
     Indication: Phosphorus metabolism disorder
     Dosage: 800 MG, QID

REACTIONS (1)
  - Blood phosphorus increased [Unknown]
